FAERS Safety Report 7148084-4 (Version None)
Quarter: 2010Q4

REPORT INFORMATION
  Report Type: 
  Country: None (occurrence: None)
  Receive Date: 20101209
  Receipt Date: 20091230
  Transmission Date: 20110411
  Serious: No
  Sender: FDA-Public Use
  Company Number: US-ABBOTT-08P-163-0437615-00

PATIENT
  Sex: Male
  Weight: 68.1 kg

DRUGS (22)
  1. VICODIN ES [Suspect]
     Indication: HEADACHE
     Route: 048
     Dates: start: 20070301, end: 20080206
  2. VICODIN ES [Suspect]
     Indication: PAIN
  3. VICODIN ES [Suspect]
     Indication: HEAD INJURY
  4. DILANTIN [Concomitant]
     Indication: EPILEPSY
     Route: 048
     Dates: start: 19450101
  5. DILANTIN [Concomitant]
  6. IBUPROFEN [Concomitant]
     Indication: PRODUCT USED FOR UNKNOWN INDICATION
  7. IBUPROFEN [Concomitant]
     Dates: end: 20080101
  8. VITAMINS [Concomitant]
     Indication: PRODUCT USED FOR UNKNOWN INDICATION
  9. ASPIRIN [Concomitant]
     Indication: PRODUCT USED FOR UNKNOWN INDICATION
     Dates: end: 20080601
  10. FLUTICASONE PROPIONATE [Concomitant]
     Indication: PRODUCT USED FOR UNKNOWN INDICATION
     Route: 045
     Dates: start: 20071026, end: 20081020
  11. LEVAQUIN [Concomitant]
     Indication: PRODUCT USED FOR UNKNOWN INDICATION
     Route: 048
     Dates: start: 20071026, end: 20071110
  12. CHOLEST-OFF [Concomitant]
     Indication: PRODUCT USED FOR UNKNOWN INDICATION
     Route: 048
     Dates: start: 20071026, end: 20071026
  13. FLEXERIL [Concomitant]
     Indication: PRODUCT USED FOR UNKNOWN INDICATION
     Route: 048
     Dates: start: 20071026
  14. DESOXIMETASONE [Concomitant]
     Indication: PRODUCT USED FOR UNKNOWN INDICATION
     Route: 061
     Dates: start: 20071026, end: 20090217
  15. DESOXIMETASONE [Concomitant]
     Route: 061
     Dates: start: 20060913, end: 20071107
  16. PHENERGAN EXPECTORANT W/ CODEINE [Concomitant]
     Indication: PRODUCT USED FOR UNKNOWN INDICATION
     Route: 048
     Dates: start: 20071026, end: 20080702
  17. ASCORBIC ACID [Concomitant]
     Indication: PRODUCT USED FOR UNKNOWN INDICATION
  18. CALCIUM [Concomitant]
     Indication: PRODUCT USED FOR UNKNOWN INDICATION
  19. FISH OIL [Concomitant]
     Indication: PRODUCT USED FOR UNKNOWN INDICATION
  20. COQ10 [Concomitant]
     Indication: PRODUCT USED FOR UNKNOWN INDICATION
  21. B100 [Concomitant]
     Indication: PRODUCT USED FOR UNKNOWN INDICATION
  22. FREEZE IT [Concomitant]
     Indication: PRODUCT USED FOR UNKNOWN INDICATION

REACTIONS (13)
  - BRONCHITIS [None]
  - CONSTIPATION [None]
  - CONTUSION [None]
  - COUGH [None]
  - DRUG INEFFECTIVE [None]
  - LOCALISED INFECTION [None]
  - LUNG DISORDER [None]
  - NASOPHARYNGITIS [None]
  - PAIN [None]
  - POLLAKIURIA [None]
  - RASH [None]
  - SKIN DISCOLOURATION [None]
  - UPPER RESPIRATORY TRACT INFECTION [None]
